FAERS Safety Report 6420844-4 (Version None)
Quarter: 2009Q4

REPORT INFORMATION
  Report Type: 
  Country: None (occurrence: None)
  Receive Date: 20091030
  Receipt Date: 20091021
  Transmission Date: 20100525
  Serious: Yes (Other)
  Sender: FDA-Public Use
  Company Number: US-WYE-H11737209

PATIENT
  Sex: Female
  Weight: 90.8 kg

DRUGS (4)
  1. PRISTIQ [Suspect]
     Route: 048
     Dates: start: 20091001
  2. RESTORIL [Concomitant]
     Dosage: UNSPECIFIED NIGHTLY DOSE
  3. XANAX [Concomitant]
     Dosage: UNSPECIFIED NIGHTLY DOSE
  4. QUETIAPINE [Concomitant]
     Dosage: UNSPECIFIED NIGHTLY DOSE

REACTIONS (6)
  - AGGRESSION [None]
  - ANGER [None]
  - HYPERHIDROSIS [None]
  - IRRITABILITY [None]
  - NIGHTMARE [None]
  - VIOLENCE-RELATED SYMPTOM [None]
